FAERS Safety Report 15070328 (Version 1)
Quarter: 2018Q2

REPORT INFORMATION
  Report Type: Spontaneous
  Country: US (occurrence: US)
  Receive Date: 20180626
  Receipt Date: 20180626
  Transmission Date: 20180711
  Serious: Yes (Other)
  Sender: FDA-Public Use
  Company Number: US-BEH-2018092013

PATIENT
  Age: 62 Year
  Sex: Female

DRUGS (1)
  1. HIZENTRA [Suspect]
     Active Substance: HUMAN IMMUNOGLOBULIN G
     Indication: PLASMA CELL MYELOMA
     Dosage: 8 G, QW
     Route: 058
     Dates: start: 20161201

REACTIONS (3)
  - Vomiting [Unknown]
  - Nausea [Unknown]
  - Vertigo [Unknown]

NARRATIVE: CASE EVENT DATE: 20180610
